FAERS Safety Report 26165653 (Version 1)
Quarter: 2025Q4

REPORT INFORMATION
  Report Type: Spontaneous
  Country: EU (occurrence: EU)
  Receive Date: 20251216
  Receipt Date: 20251216
  Transmission Date: 20260117
  Serious: Yes (Hospitalization)
  Sender: MYLAN
  Company Number: None

PATIENT
  Age: 75 Year
  Sex: Male

DRUGS (8)
  1. PACLITAXEL [Suspect]
     Active Substance: PACLITAXEL
     Indication: Squamous cell carcinoma
     Dosage: 1 DOSAGE FORM, CYCLE
     Dates: start: 20250822, end: 20251016
  2. PACLITAXEL [Suspect]
     Active Substance: PACLITAXEL
     Dosage: 1 DOSAGE FORM, CYCLE
     Route: 042
     Dates: start: 20250822, end: 20251016
  3. PACLITAXEL [Suspect]
     Active Substance: PACLITAXEL
     Dosage: 1 DOSAGE FORM, CYCLE
     Route: 042
     Dates: start: 20250822, end: 20251016
  4. PACLITAXEL [Suspect]
     Active Substance: PACLITAXEL
     Dosage: 1 DOSAGE FORM, CYCLE
     Dates: start: 20250822, end: 20251016
  5. CARBOPLATIN [Suspect]
     Active Substance: CARBOPLATIN
     Indication: Squamous cell carcinoma
     Dosage: 1 DOSAGE FORM, CYCLE
     Dates: start: 20250822, end: 20251016
  6. CARBOPLATIN [Suspect]
     Active Substance: CARBOPLATIN
     Dosage: 1 DOSAGE FORM, CYCLE
     Route: 042
     Dates: start: 20250822, end: 20251016
  7. CARBOPLATIN [Suspect]
     Active Substance: CARBOPLATIN
     Dosage: 1 DOSAGE FORM, CYCLE
     Route: 042
     Dates: start: 20250822, end: 20251016
  8. CARBOPLATIN [Suspect]
     Active Substance: CARBOPLATIN
     Dosage: 1 DOSAGE FORM, CYCLE
     Dates: start: 20250822, end: 20251016

REACTIONS (1)
  - Colitis [Recovering/Resolving]

NARRATIVE: CASE EVENT DATE: 20251008
